FAERS Safety Report 7264747-4 (Version None)
Quarter: 2011Q1

REPORT INFORMATION
  Report Type: 
  Country: None (occurrence: None)
  Receive Date: 20110131
  Receipt Date: 20110117
  Transmission Date: 20110831
  Serious: Yes (Hospitalization)
  Sender: FDA-Public Use
  Company Number: US-CELGENEUS-163-21880-11011864

PATIENT
  Sex: Female
  Weight: 61.29 kg

DRUGS (12)
  1. LEVOXYL [Concomitant]
     Route: 048
  2. ASA [Concomitant]
     Route: 048
  3. SENNA [Concomitant]
     Route: 048
  4. AVAPRO [Concomitant]
     Route: 048
  5. VITAMIN B6 [Concomitant]
     Route: 048
  6. OXYCODONE [Concomitant]
     Route: 065
  7. REVLIMID [Suspect]
     Route: 048
     Dates: start: 20110113
  8. LOPRESSOR [Concomitant]
     Route: 048
  9. COLACE [Concomitant]
     Route: 048
  10. REVLIMID [Suspect]
     Indication: MULTIPLE MYELOMA
     Route: 048
     Dates: start: 20101125, end: 20101130
  11. DEXAMETHASONE [Concomitant]
     Route: 048
  12. PRILOSEC [Concomitant]
     Route: 048

REACTIONS (2)
  - FALL [None]
  - VASCULITIS [None]
